FAERS Safety Report 12633310 (Version 2)
Quarter: 2016Q3

REPORT INFORMATION
  Report Type: Spontaneous
  Country: US (occurrence: US)
  Receive Date: 20160808
  Receipt Date: 20160808
  Transmission Date: 20161109
  Serious: No
  Sender: FDA-Public Use
  Company Number: US-BEH-2016060460

PATIENT
  Sex: Female
  Weight: 56 kg

DRUGS (28)
  1. FLUOXETINE [Concomitant]
     Active Substance: FLUOXETINE HYDROCHLORIDE
  2. FLUCONAZOLE. [Concomitant]
     Active Substance: FLUCONAZOLE
  3. OMEGA-3-KRILL OIL [Concomitant]
  4. HIZENTRA [Suspect]
     Active Substance: HUMAN IMMUNOGLOBULIN G
     Route: 058
  5. EPIPEN [Concomitant]
     Active Substance: EPINEPHRINE
  6. ALPHAGAN P [Concomitant]
     Active Substance: BRIMONIDINE TARTRATE
  7. ARMOUR THYROID [Concomitant]
     Active Substance: THYROID, PORCINE
  8. CALCIUM + VITAMIN D [Concomitant]
     Active Substance: CALCIUM\VITAMIN D
  9. FLUCONAZOLE. [Concomitant]
     Active Substance: FLUCONAZOLE
  10. CIPRO [Concomitant]
     Active Substance: CIPROFLOXACIN HYDROCHLORIDE
  11. DIPHENHYDRAMINE. [Concomitant]
     Active Substance: DIPHENHYDRAMINE
  12. LIPITOR [Concomitant]
     Active Substance: ATORVASTATIN CALCIUM
  13. ETODOLAC. [Concomitant]
     Active Substance: ETODOLAC
  14. HIZENTRA [Suspect]
     Active Substance: HUMAN IMMUNOGLOBULIN G
     Indication: IMMUNODEFICIENCY COMMON VARIABLE
     Route: 058
  15. KLOR-CON [Concomitant]
     Active Substance: POTASSIUM CHLORIDE
  16. L-M-X [Concomitant]
  17. SULFER [Concomitant]
  18. HIZENTRA [Suspect]
     Active Substance: HUMAN IMMUNOGLOBULIN G
     Route: 058
  19. NITROFURANTOIN. [Concomitant]
     Active Substance: NITROFURANTOIN
  20. CHLORTHALIDONE. [Concomitant]
     Active Substance: CHLORTHALIDONE
  21. ZYRTEC [Concomitant]
     Active Substance: CETIRIZINE HYDROCHLORIDE
  22. MUCINEX D ER [Concomitant]
  23. COMPLETE MULTIVITAMIN [Concomitant]
     Active Substance: VITAMINS
  24. HIZENTRA [Suspect]
     Active Substance: HUMAN IMMUNOGLOBULIN G
     Route: 058
  25. AMITRIPTYLINE [Concomitant]
     Active Substance: AMITRIPTYLINE
  26. MORPHINE [Concomitant]
     Active Substance: MORPHINE
  27. LIDOCAINE/PRILOCAINE [Concomitant]
     Active Substance: LIDOCAINE\PRILOCAINE
  28. ALBUTEROL. [Concomitant]
     Active Substance: ALBUTEROL

REACTIONS (1)
  - Fibromyalgia [Unknown]
